FAERS Safety Report 25649065 (Version 2)
Quarter: 2025Q3

REPORT INFORMATION
  Report Type: Spontaneous
  Country: US (occurrence: US)
  Receive Date: 20250806
  Receipt Date: 20250915
  Transmission Date: 20251020
  Serious: No
  Sender: DECIPHERA PHARMACEUTICALS
  Company Number: US-DECIPHERA PHARMACEUTICALS LLC-2025US000898

PATIENT
  Sex: Female

DRUGS (2)
  1. ROMVIMZA [Suspect]
     Active Substance: VIMSELTINIB
     Indication: Giant cell tumour of tendon sheath
     Dosage: 30 MILLIGRAM, TWICE WEEKLY
     Dates: start: 20250322, end: 2025
  2. ROMVIMZA [Suspect]
     Active Substance: VIMSELTINIB
     Dosage: 20 MILLIGRAM, TWICE WEEKLY  (REDUCED DOSE)
     Dates: start: 2025

REACTIONS (3)
  - Conjunctival oedema [Unknown]
  - Periorbital oedema [Unknown]
  - Vision blurred [Unknown]

NARRATIVE: CASE EVENT DATE: 20250722
